FAERS Safety Report 9759662 (Version 2)
Quarter: 2013Q4

REPORT INFORMATION
  Report Type: Spontaneous
  Country: None (occurrence: US)
  Receive Date: 20131216
  Receipt Date: 20131216
  Transmission Date: 20140711
  Serious: No
  Sender: FDA-Public Use
  Company Number: US-GILEAD-2010-0028475

PATIENT
  Sex: Female
  Weight: 57.61 kg

DRUGS (33)
  1. LETAIRIS [Suspect]
     Indication: PULMONARY ARTERIAL HYPERTENSION
     Route: 048
     Dates: start: 20091109
  2. COMBIVENT [Concomitant]
  3. VITAMIN D [Concomitant]
  4. AMOXICILLIN [Concomitant]
  5. ALPRAZOLAM [Concomitant]
  6. COZAAR [Concomitant]
  7. LANTUS [Concomitant]
  8. CITALOPRAM [Concomitant]
  9. ISOSORBIDE [Concomitant]
  10. CETRIZINE [Concomitant]
  11. ALBUTEROL [Concomitant]
  12. DIGOXIN [Concomitant]
  13. SODIUM CHLORIDE [Concomitant]
  14. KEPPRA [Concomitant]
  15. REVATIO [Concomitant]
  16. RESTORIL [Concomitant]
  17. LEXAPRO [Concomitant]
  18. ALDACTONE [Concomitant]
  19. POTASSIUM CHLORIDE [Concomitant]
  20. LANOXIN [Concomitant]
  21. MILK OF MAG [Concomitant]
  22. MAGNESIUM [Concomitant]
  23. XANAX [Concomitant]
  24. DULCOLAX [Concomitant]
  25. WELLBUTRIN [Concomitant]
  26. NASACORT [Concomitant]
  27. GLUCOPHAGE [Concomitant]
  28. NEURONTIN [Concomitant]
  29. PRILOSEC [Concomitant]
  30. HYDROCHLOROTHIAZIDE [Concomitant]
  31. ZOCOR [Concomitant]
  32. NIFEREX [Concomitant]
  33. L-ARGININE [Concomitant]

REACTIONS (1)
  - Gastrointestinal motility disorder [Unknown]
